FAERS Safety Report 17108947 (Version 2)
Quarter: 2020Q1

REPORT INFORMATION
  Report Type: Report from Study
  Country: US (occurrence: US)
  Receive Date: 20191204
  Receipt Date: 20200107
  Transmission Date: 20200409
  Serious: Yes (Hospitalization, Other)
  Sender: FDA-Public Use
  Company Number: US-ROCHE-2325455

PATIENT
  Age: 54 Year
  Sex: Male
  Weight: 114.41 kg

DRUGS (18)
  1. AMANTADINE. [Concomitant]
     Active Substance: AMANTADINE HYDROCHLORIDE
     Dosage: KEEP AWAKE?TAKE IN MORNING
     Route: 048
  2. MARINOL [Concomitant]
     Active Substance: DRONABINOL
     Indication: PAIN
     Dosage: ONGOING YES
     Route: 065
  3. OCREVUS [Suspect]
     Active Substance: OCRELIZUMAB
     Indication: PRIMARY PROGRESSIVE MULTIPLE SCLEROSIS
  4. VENTOLIN HFA [Concomitant]
     Active Substance: ALBUTEROL SULFATE
     Indication: ASTHMA
     Dosage: 2 PUFFS 4 TIMES DAILY
     Route: 055
  5. OCREVUS [Suspect]
     Active Substance: OCRELIZUMAB
     Indication: RELAPSING MULTIPLE SCLEROSIS
     Route: 042
     Dates: start: 201812
  6. DRONABINOL. [Concomitant]
     Active Substance: DRONABINOL
     Indication: PAIN
     Route: 065
     Dates: start: 2015
  7. VOLTAREN [DICLOFENAC] [Concomitant]
     Active Substance: DICLOFENAC SODIUM
     Indication: PAIN
     Route: 065
     Dates: start: 2018
  8. VITAMIN D3 [Concomitant]
     Active Substance: CHOLECALCIFEROL
     Route: 048
     Dates: start: 2019
  9. SOLU-MEDROL [Concomitant]
     Active Substance: METHYLPREDNISOLONE SODIUM SUCCINATE
  10. OMEPRAZOLE. [Concomitant]
     Active Substance: OMEPRAZOLE
     Indication: GASTROOESOPHAGEAL REFLUX DISEASE
     Dosage: TAKES AT 5 PM
     Route: 048
  11. NYSTATIN. [Concomitant]
     Active Substance: NYSTATIN
     Indication: PRURITUS
     Dosage: 1000 USP
     Route: 065
     Dates: start: 2015
  12. TRAZODONE [Concomitant]
     Active Substance: TRAZODONE HYDROCHLORIDE
     Dosage: BEDTIME
     Route: 065
     Dates: start: 2017
  13. SEROQUEL [Concomitant]
     Active Substance: QUETIAPINE FUMARATE
     Indication: POST-TRAUMATIC STRESS DISORDER
     Dosage: MENTAL ILLNESS
     Route: 048
  14. XARELTO [Concomitant]
     Active Substance: RIVAROXABAN
     Indication: DEEP VEIN THROMBOSIS
     Dosage: TAKES 5 PM
     Route: 048
  15. OCREVUS [Suspect]
     Active Substance: OCRELIZUMAB
     Indication: SECONDARY PROGRESSIVE MULTIPLE SCLEROSIS
     Dosage: HALF DOSES?SECOND HALF DOSE RECEIVED ON 18/DEC/2018
     Route: 042
     Dates: start: 20181204
  16. DRONABINOL. [Concomitant]
     Active Substance: DRONABINOL
     Dosage: TAKES EVERY 4 HOURS
     Route: 065
  17. ARIPIPRAZOLE. [Concomitant]
     Active Substance: ARIPIPRAZOLE
     Indication: DEPRESSION
     Route: 065
     Dates: start: 2017
  18. PRIMIDONE. [Concomitant]
     Active Substance: PRIMIDONE
     Indication: TREMOR
     Dosage: 150 MG AT BEDTIME
     Route: 048
     Dates: start: 2019

REACTIONS (14)
  - Oropharyngeal pain [Recovered/Resolved]
  - Influenza [Not Recovered/Not Resolved]
  - Bradycardia [Recovered/Resolved]
  - Cough [Not Recovered/Not Resolved]
  - Multiple sclerosis relapse [Recovered/Resolved]
  - Pain [Recovered/Resolved]
  - Occult blood positive [Unknown]
  - Pruritus [Recovered/Resolved]
  - Erythema [Not Recovered/Not Resolved]
  - Cataract [Not Recovered/Not Resolved]
  - Muscular weakness [Recovered/Resolved]
  - Pain in extremity [Recovered/Resolved]
  - Infection [Not Recovered/Not Resolved]
  - Rhinorrhoea [Recovering/Resolving]

NARRATIVE: CASE EVENT DATE: 201901
